FAERS Safety Report 20171120 (Version 3)
Quarter: 2022Q4

REPORT INFORMATION
  Report Type: Report from Study
  Country: US (occurrence: US)
  Receive Date: 20211210
  Receipt Date: 20221208
  Transmission Date: 20230112
  Serious: Yes (Hospitalization, Other)
  Sender: FDA-Public Use
  Company Number: US-TAKEDA-US201838474

PATIENT
  Age: 59 Year
  Sex: Male
  Weight: 82 kg

DRUGS (17)
  1. TEDUGLUTIDE [Suspect]
     Active Substance: TEDUGLUTIDE
     Indication: Short-bowel syndrome
     Dosage: 4.5 MILLIGRAM, QD
     Route: 042
     Dates: end: 20200207
  2. TEDUGLUTIDE [Suspect]
     Active Substance: TEDUGLUTIDE
     Indication: Short-bowel syndrome
     Dosage: 4.5 MILLIGRAM, QD
     Route: 042
     Dates: end: 20200207
  3. TEDUGLUTIDE [Suspect]
     Active Substance: TEDUGLUTIDE
     Indication: Short-bowel syndrome
     Dosage: 4.5 MILLIGRAM, QD
     Route: 042
     Dates: end: 20200207
  4. TEDUGLUTIDE [Suspect]
     Active Substance: TEDUGLUTIDE
     Indication: Short-bowel syndrome
     Dosage: 4.5 MILLIGRAM, QD
     Route: 042
     Dates: end: 20200207
  5. TEDUGLUTIDE [Suspect]
     Active Substance: TEDUGLUTIDE
     Dosage: 2.5 MILLIGRAM, QD
     Route: 042
  6. TEDUGLUTIDE [Suspect]
     Active Substance: TEDUGLUTIDE
     Dosage: 2.5 MILLIGRAM, QD
     Route: 042
  7. TEDUGLUTIDE [Suspect]
     Active Substance: TEDUGLUTIDE
     Dosage: 2.5 MILLIGRAM, QD
     Route: 042
  8. TEDUGLUTIDE [Suspect]
     Active Substance: TEDUGLUTIDE
     Dosage: 2.5 MILLIGRAM, QD
     Route: 042
  9. OXYGEN [Concomitant]
     Active Substance: OXYGEN
     Indication: Hypoxia
  10. VANCOCIN [Concomitant]
     Active Substance: VANCOMYCIN HYDROCHLORIDE
     Indication: Subcutaneous abscess
  11. VANCOCIN [Concomitant]
     Active Substance: VANCOMYCIN HYDROCHLORIDE
     Indication: Antibiotic therapy
  12. MORPHINE [Concomitant]
     Active Substance: MORPHINE
     Indication: Pain
  13. MORPHINE [Concomitant]
     Active Substance: MORPHINE
     Indication: Subcutaneous abscess
  14. VANCOMYCIN [Concomitant]
     Active Substance: VANCOMYCIN
     Indication: Device related bacteraemia
     Dosage: 7.5 MILLIGRAM, QD
     Route: 050
     Dates: start: 20190811
  15. VANCOMYCIN [Concomitant]
     Active Substance: VANCOMYCIN
     Dosage: 1000.0 MILLIGRAM, QD
     Route: 042
     Dates: start: 20190811, end: 20190910
  16. VANCOMYCIN [Concomitant]
     Active Substance: VANCOMYCIN
     Dosage: 1000.0 MILLIGRAM, QD
     Route: 042
     Dates: start: 20190810, end: 20190810
  17. NAFCILLIN [Concomitant]
     Active Substance: NAFCILLIN SODIUM
     Indication: Bacteraemia
     Dosage: 12 GRAM, QD
     Route: 042
     Dates: start: 20190811, end: 20190910

REACTIONS (4)
  - Hypokalaemia [Recovered/Resolved]
  - Vomiting [Recovered/Resolved]
  - Sepsis [Recovered/Resolved]
  - Nausea [Not Recovered/Not Resolved]

NARRATIVE: CASE EVENT DATE: 20181002
